FAERS Safety Report 10993047 (Version 1)
Quarter: 2015Q2

REPORT INFORMATION
  Report Type: Spontaneous
  Country: TW (occurrence: TW)
  Receive Date: 20150407
  Receipt Date: 20150407
  Transmission Date: 20150821
  Serious: Yes (Hospitalization)
  Sender: FDA-Public Use
  Company Number: TW-ABBVIE-15K-153-1368721-00

PATIENT
  Age: 76 Year
  Sex: Female

DRUGS (3)
  1. VALSARTAN. [Concomitant]
     Active Substance: VALSARTAN
     Dosage: 1 #
     Route: 048
     Dates: start: 20150310, end: 20150313
  2. VALSARTAN. [Concomitant]
     Active Substance: VALSARTAN
     Indication: PRODUCT USED FOR UNKNOWN INDICATION
     Dosage: 1 #
     Route: 048
     Dates: start: 20150224, end: 20150228
  3. HUMIRA [Suspect]
     Active Substance: ADALIMUMAB
     Indication: RHEUMATOID ARTHRITIS
     Route: 058
     Dates: start: 20121217, end: 20150211

REACTIONS (37)
  - Hypokalaemia [Recovering/Resolving]
  - Blood sodium abnormal [Recovering/Resolving]
  - Blood creatinine decreased [Unknown]
  - Arthritis bacterial [Unknown]
  - Blood sodium decreased [Unknown]
  - Blood chloride decreased [Unknown]
  - PO2 decreased [Unknown]
  - Oxygen saturation decreased [Unknown]
  - Wound complication [Unknown]
  - Blood pH increased [Unknown]
  - White blood cell count increased [Unknown]
  - Haemoglobin decreased [Unknown]
  - Lymphocyte count decreased [Unknown]
  - Blood magnesium decreased [Unknown]
  - Hyperthyroidism [Recovered/Resolved]
  - Dizziness [Recovered/Resolved]
  - Cellulitis staphylococcal [Unknown]
  - Blood corticotrophin decreased [Unknown]
  - Bundle branch block right [Unknown]
  - Decreased appetite [Recovered/Resolved]
  - Blood creatine phosphokinase increased [Unknown]
  - Blood calcium decreased [Unknown]
  - C-reactive protein increased [Unknown]
  - Platelet count increased [Unknown]
  - Blood potassium decreased [Unknown]
  - Blood creatinine decreased [Unknown]
  - Neutrophil count increased [Unknown]
  - Neutrophil count increased [Unknown]
  - Dyspnoea [Recovered/Resolved]
  - Lymphocyte count decreased [Unknown]
  - Monarthritis [Recovered/Resolved]
  - Cellulitis [Recovered/Resolved]
  - Fatigue [Recovered/Resolved]
  - Somnolence [Unknown]
  - Altered state of consciousness [Recovered/Resolved]
  - Crystal arthropathy [Unknown]
  - Blood osmolarity decreased [Unknown]

NARRATIVE: CASE EVENT DATE: 20150223
